FAERS Safety Report 6338596-5 (Version None)
Quarter: 2009Q3

REPORT INFORMATION
  Report Type: 
  Country: None (occurrence: None)
  Receive Date: 20090903
  Receipt Date: 20070706
  Transmission Date: 20100115
  Serious: Yes (Other)
  Sender: FDA-Public Use
  Company Number: US-ASTRAZENECA-2006UW26495

PATIENT
  Age: 21276 Day
  Sex: Female
  Weight: 78.5 kg

DRUGS (6)
  1. SEROQUEL [Suspect]
     Indication: SCHIZOPHRENIA
     Route: 048
     Dates: start: 19970101
  2. SEROQUEL [Suspect]
     Dosage: 25 MG - 200 MG
     Route: 048
     Dates: start: 20030104
  3. ABILIFY [Concomitant]
     Dates: start: 19970101
  4. ZYPREXA/SYMBYAZ [Concomitant]
     Dates: start: 19970101, end: 20020101
  5. ZYPREXA/SYMBYAZ [Concomitant]
     Dates: start: 20000804
  6. ZOLOFT [Concomitant]
     Dates: start: 20010817

REACTIONS (4)
  - DIABETES MELLITUS [None]
  - DIABETIC RETINOPATHY [None]
  - HYPOGLYCAEMIA [None]
  - TYPE 2 DIABETES MELLITUS [None]
